FAERS Safety Report 6176108-X (Version None)
Quarter: 2009Q2

REPORT INFORMATION
  Report Type: 
  Country: None (occurrence: None)
  Receive Date: 20090501
  Receipt Date: 20090423
  Transmission Date: 20091009
  Serious: Yes (Other)
  Sender: FDA-Public Use
  Company Number: NL-GENENTECH-281893

PATIENT
  Sex: Female

DRUGS (1)
  1. NUTROPIN [Suspect]
     Indication: TURNER'S SYNDROME
     Dosage: UNK, QD
     Route: 058
     Dates: start: 20080201

REACTIONS (2)
  - DERMATITIS ALLERGIC [None]
  - DRUG INEFFECTIVE [None]
